FAERS Safety Report 21882534 (Version 1)
Quarter: 2023Q1

REPORT INFORMATION
  Report Type: Report from Study
  Country: US (occurrence: US)
  Receive Date: 20230119
  Receipt Date: 20230119
  Transmission Date: 20230418
  Serious: No
  Sender: FDA-Public Use
  Company Number: US-Accord-264545

PATIENT
  Sex: Male
  Weight: 131.09 kg

DRUGS (1)
  1. CLOZAPINE [Suspect]
     Active Substance: CLOZAPINE
     Indication: Schizoaffective disorder
     Dosage: DOSE: 100 MG AND 50 MG, 1 TABLET EACH THREE TIMES A DAY
     Route: 048

REACTIONS (1)
  - Neutrophil count decreased [Recovered/Resolved]
